FAERS Safety Report 8606755 (Version 2)
Quarter: 2014Q1

REPORT INFORMATION
  Report Type: Spontaneous
  Country: US (occurrence: US)
  Receive Date: 20120611
  Receipt Date: 20140129
  Transmission Date: 20141002
  Serious: Yes (Hospitalization, Disabling, Other)
  Sender: FDA-Public Use
  Company Number: US-ASTRAZENECA-2012SE34921

PATIENT
  Age: 490 Month
  Sex: Female
  Weight: 80.7 kg

DRUGS (13)
  1. NEXIUM [Suspect]
     Indication: GASTROOESOPHAGEAL REFLUX DISEASE
     Route: 048
     Dates: start: 2003, end: 201103
  2. NEXIUM [Suspect]
     Indication: GASTROOESOPHAGEAL REFLUX DISEASE
     Route: 048
     Dates: start: 200607
  3. NEXIUM [Suspect]
     Indication: GASTROOESOPHAGEAL REFLUX DISEASE
     Route: 048
     Dates: start: 20050531
  4. OMEPRAZOLE [Suspect]
     Indication: GASTROOESOPHAGEAL REFLUX DISEASE
     Dosage: PRILOSEC
     Route: 048
     Dates: start: 200805, end: 200807
  5. OMEPRAZOLE [Suspect]
     Indication: GASTROOESOPHAGEAL REFLUX DISEASE
     Dosage: OMEPRAZOLE
     Route: 048
     Dates: start: 200804, end: 20081227
  6. OMEPRAZOLE [Suspect]
     Indication: GASTROOESOPHAGEAL REFLUX DISEASE
     Route: 048
     Dates: start: 20080408
  7. OMEPRAZOLE [Suspect]
     Indication: GASTROOESOPHAGEAL REFLUX DISEASE
     Route: 048
     Dates: start: 20080607
  8. ROLAIDS [Concomitant]
  9. PREVACID [Concomitant]
     Indication: GASTROOESOPHAGEAL REFLUX DISEASE
  10. METHADONE [Concomitant]
     Indication: DEPENDENCE
  11. ZOLOFT [Concomitant]
     Indication: DEPRESSION
  12. PROZAC [Concomitant]
     Indication: DEPRESSION
  13. EFFEXOR [Concomitant]
     Indication: DEPRESSION

REACTIONS (10)
  - Hip fracture [Unknown]
  - Cervical vertebral fracture [Unknown]
  - Osteoporosis [Unknown]
  - Ankle fracture [Unknown]
  - Tibia fracture [Unknown]
  - Stress fracture [Unknown]
  - Pain in extremity [Unknown]
  - Gastric disorder [Unknown]
  - Thrombosis [Unknown]
  - Arthralgia [Unknown]
